FAERS Safety Report 5049967-1 (Version None)
Quarter: 2006Q3

REPORT INFORMATION
  Report Type: 
  Country: None (occurrence: None)
  Receive Date: 20060707
  Receipt Date: 20060628
  Transmission Date: 20061208
  Serious: Yes (Death)
  Sender: FDA-Public Use
  Company Number: 146386USA

PATIENT
  Age: 18 Year
  Sex: Male

DRUGS (1)
  1. SULFAMETHOXAZOLE + TRIMETHOPRIM [Suspect]
     Indication: ACNE
     Dates: start: 20060407

REACTIONS (2)
  - COLLAPSE OF LUNG [None]
  - PNEUMONIA BACTERIAL [None]
